FAERS Safety Report 18945498 (Version 5)
Quarter: 2021Q1

REPORT INFORMATION
  Report Type: Spontaneous
  Country: US (occurrence: US)
  Receive Date: 20210226
  Receipt Date: 20210329
  Transmission Date: 20210420
  Serious: Yes (Hospitalization)
  Sender: FDA-Public Use
  Company Number: US-GLAXOSMITHKLINE-US2021AMR052622

PATIENT
  Sex: Female

DRUGS (2)
  1. JARDIANCE [Concomitant]
     Active Substance: EMPAGLIFLOZIN
     Indication: PRODUCT USED FOR UNKNOWN INDICATION
     Dosage: 10 MG, QD
  2. ZEJULA [Suspect]
     Active Substance: NIRAPARIB
     Indication: OVARIAN CANCER
     Dosage: 300 MG, QD
     Route: 048
     Dates: start: 20210213, end: 20210308

REACTIONS (10)
  - Panic attack [Unknown]
  - Hospitalisation [Unknown]
  - Product monitoring error [Unknown]
  - Frustration tolerance decreased [Unknown]
  - Anxiety [Unknown]
  - Gait inability [Unknown]
  - Emotional distress [Unknown]
  - Sleep disorder [Unknown]
  - Impaired healing [Not Recovered/Not Resolved]
  - Dyspnoea [Unknown]
